FAERS Safety Report 14342198 (Version 1)
Quarter: 2018Q1

REPORT INFORMATION
  Report Type: Spontaneous
  Country: US (occurrence: US)
  Receive Date: 20180102
  Receipt Date: 20180102
  Transmission Date: 20180509
  Serious: No
  Sender: FDA-Public Use
  Company Number: US-TEVA-782413ACC

PATIENT
  Age: 48 Year
  Sex: Female

DRUGS (1)
  1. DULOXETINE DELAYED-RELEASE CAPSULES [Suspect]
     Active Substance: DULOXETINE
     Indication: BACK PAIN
     Dates: end: 20170624

REACTIONS (9)
  - Chills [Unknown]
  - Feeling cold [Unknown]
  - Myalgia [Unknown]
  - Tremor [Unknown]
  - Abnormal dreams [Unknown]
  - Hyperhidrosis [Unknown]
  - Arthralgia [Unknown]
  - Insomnia [Unknown]
  - Product substitution issue [Unknown]

NARRATIVE: CASE EVENT DATE: 20170624
